FAERS Safety Report 4870686-6 (Version None)
Quarter: 2006Q1

REPORT INFORMATION
  Report Type: 
  Country: None (occurrence: None)
  Receive Date: 20060103
  Receipt Date: 20051230
  Transmission Date: 20060701
  Serious: Yes (Other)
  Sender: FDA-Public Use
  Company Number: US-GLAXOSMITHKLINE-A0587332A

PATIENT
  Age: 44 Year
  Sex: Female

DRUGS (2)
  1. LAMICTAL [Suspect]
     Indication: BIPOLAR DISORDER
     Dosage: 50MG PER DAY
     Route: 048
     Dates: start: 20051101, end: 20051228
  2. XANAX [Concomitant]

REACTIONS (5)
  - ABNORMAL DREAMS [None]
  - AMNESIA [None]
  - DYSARTHRIA [None]
  - FACIAL PALSY [None]
  - INSOMNIA [None]
